FAERS Safety Report 11215508 (Version 1)
Quarter: 2015Q2

REPORT INFORMATION
  Report Type: Spontaneous
  Country: US (occurrence: None)
  Receive Date: 20150623
  Receipt Date: 20150623
  Transmission Date: 20150821
  Serious: Yes (Other)
  Sender: FDA-Public Use
  Company Number: None

PATIENT
  Age: 41 Year
  Sex: Female

DRUGS (1)
  1. FORTEO [Suspect]
     Active Substance: TERIPARATIDE
     Indication: OSTEOPOROSIS
     Dosage: TOOK 1 DOSE ONLY
     Route: 058

REACTIONS (4)
  - Eye movement disorder [None]
  - Mydriasis [None]
  - Dizziness [None]
  - Photophobia [None]

NARRATIVE: CASE EVENT DATE: 20150622
